FAERS Safety Report 10675017 (Version 1)
Quarter: 2014Q4

REPORT INFORMATION
  Report Type: Spontaneous
  Country: US (occurrence: US)
  Receive Date: 20141224
  Receipt Date: 20141224
  Transmission Date: 20150529
  Serious: Yes (Life-Threatening, Hospitalization, Other)
  Sender: FDA-Public Use
  Company Number: US-JNJFOC-20141209989

PATIENT
  Age: 23 Year
  Sex: Female

DRUGS (3)
  1. TRAMADOL HYDROCHLORIDE. [Suspect]
     Active Substance: TRAMADOL HYDROCHLORIDE
     Indication: BACK PAIN
     Dosage: 1.5 G
     Route: 048
  2. METAXALONE. [Suspect]
     Active Substance: METAXALONE
     Indication: BACK PAIN
     Dosage: 12 G
     Route: 048
  3. NAPROXEN. [Suspect]
     Active Substance: NAPROXEN
     Indication: BACK PAIN
     Route: 048

REACTIONS (5)
  - Suicidal behaviour [Unknown]
  - Intentional overdose [Unknown]
  - Blood prolactin increased [Recovered/Resolved]
  - Status epilepticus [Recovered/Resolved]
  - Serotonin syndrome [Recovering/Resolving]
